FAERS Safety Report 22258785 (Version 3)
Quarter: 2023Q2

REPORT INFORMATION
  Report Type: Report from Study
  Country: US (occurrence: US)
  Receive Date: 20230427
  Receipt Date: 20230614
  Transmission Date: 20230722
  Serious: Yes (Hospitalization)
  Sender: FDA-Public Use
  Company Number: US-JNJFOC-20230452966

PATIENT
  Age: 19 Year
  Sex: Female
  Weight: 52.8 kg

DRUGS (15)
  1. INFLIXIMAB [Suspect]
     Active Substance: INFLIXIMAB
     Indication: Inflammatory bowel disease
     Route: 041
     Dates: start: 20080205, end: 20090114
  2. PANTOPRAZOLE [Concomitant]
     Active Substance: PANTOPRAZOLE
  3. SINGULAIR [Concomitant]
     Active Substance: MONTELUKAST SODIUM
  4. GRANISETRON [Concomitant]
     Active Substance: GRANISETRON
  5. ACETAMINOPHEN [Concomitant]
     Active Substance: ACETAMINOPHEN
  6. SIROLIMUS [Concomitant]
     Active Substance: SIROLIMUS
  7. CETIRIZINE [Concomitant]
     Active Substance: CETIRIZINE HYDROCHLORIDE
  8. CEPHALEXIN [Concomitant]
     Active Substance: CEPHALEXIN
  9. CYPROHEPTADINE [Concomitant]
     Active Substance: CYPROHEPTADINE
  10. DAPSONE [Concomitant]
     Active Substance: DAPSONE
  11. MINASTRIN 24 FE [Concomitant]
     Active Substance: ETHINYL ESTRADIOL\NORETHINDRONE ACETATE
  12. TRAMADOL [Concomitant]
     Active Substance: TRAMADOL
  13. LOPERAMIDE [Concomitant]
     Active Substance: LOPERAMIDE
  14. STELARA [Concomitant]
     Active Substance: USTEKINUMAB
     Dates: start: 20151208, end: 20190107
  15. CHOLECALCIFEROL [Concomitant]
     Active Substance: CHOLECALCIFEROL

REACTIONS (1)
  - Abdominal pain [Recovered/Resolved]

NARRATIVE: CASE EVENT DATE: 20190502
